FAERS Safety Report 21838885 (Version 1)
Quarter: 2023Q1

REPORT INFORMATION
  Report Type: Spontaneous
  Country: US (occurrence: None)
  Receive Date: 20230107
  Receipt Date: 20230107
  Transmission Date: 20230418
  Serious: No
  Sender: FDA-Public Use
  Company Number: None

PATIENT
  Age: 63 Year
  Sex: Male
  Weight: 103 kg

DRUGS (1)
  1. NIRMATRELVIR\RITONAVIR [Suspect]
     Active Substance: NIRMATRELVIR\RITONAVIR
     Indication: COVID-19
     Dosage: 300/100 MG BID PO
     Route: 048
     Dates: start: 20221219, end: 20221220

REACTIONS (4)
  - Nausea [None]
  - Vomiting [None]
  - Night sweats [None]
  - Taste disorder [None]

NARRATIVE: CASE EVENT DATE: 20221219
